FAERS Safety Report 23238651 (Version 1)
Quarter: 2023Q4

REPORT INFORMATION
  Report Type: Spontaneous
  Country: US (occurrence: US)
  Receive Date: 20231129
  Receipt Date: 20231129
  Transmission Date: 20240109
  Serious: Yes (Other)
  Sender: FDA-Public Use
  Company Number: US-ENDO PHARMACEUTICALS INC-2023-005420

PATIENT
  Sex: Male

DRUGS (1)
  1. RANITIDINE HYDROCHLORIDE [Suspect]
     Active Substance: RANITIDINE HYDROCHLORIDE
     Indication: Product used for unknown indication
     Dosage: UNK UNKNOWN, UNKNOWN
     Route: 065

REACTIONS (9)
  - Bladder disorder [Unknown]
  - Gastrointestinal disorder [Unknown]
  - Purulence [Unknown]
  - Rectal haemorrhage [Unknown]
  - Abdominal distension [Unknown]
  - Haemorrhoids [Unknown]
  - Abdominal pain [Unknown]
  - Constipation [Unknown]
  - Nausea [Unknown]
